FAERS Safety Report 18849921 (Version 1)
Quarter: 2021Q1

REPORT INFORMATION
  Report Type: Report from Study
  Country: CA (occurrence: CA)
  Receive Date: 20210205
  Receipt Date: 20210205
  Transmission Date: 20210420
  Serious: Yes (Other)
  Sender: FDA-Public Use
  Company Number: CA-TAKEDA-2020TUS020946

PATIENT
  Age: 25 Year
  Sex: Female

DRUGS (4)
  1. VALTRAX [Concomitant]
     Active Substance: DIAZEPAM\ISOPROPAMIDE IODIDE
     Indication: HERPES ZOSTER
     Dosage: UNK
  2. TRAMADOL. [Concomitant]
     Active Substance: TRAMADOL
     Dosage: UNK
  3. VEDOLIZUMAB [Suspect]
     Active Substance: VEDOLIZUMAB
     Indication: CROHN^S DISEASE
     Dosage: 300 MILLIGRAM
     Route: 042
     Dates: start: 201908
  4. VEDOLIZUMAB [Suspect]
     Active Substance: VEDOLIZUMAB
     Dosage: 300 MILLIGRAM, Q6WEEKS
     Route: 042
     Dates: start: 201908

REACTIONS (7)
  - Crohn^s disease [Unknown]
  - Pelvic abscess [Unknown]
  - Asthenia [Unknown]
  - Off label use [Unknown]
  - Ileal stenosis [Unknown]
  - Abdominal adhesions [Unknown]
  - Dizziness [Unknown]

NARRATIVE: CASE EVENT DATE: 201911
